FAERS Safety Report 15862754 (Version 3)
Quarter: 2019Q1

REPORT INFORMATION
  Report Type: Spontaneous
  Country: US (occurrence: US)
  Receive Date: 20190124
  Receipt Date: 20190327
  Transmission Date: 20190417
  Serious: Yes (Other)
  Sender: FDA-Public Use
  Company Number: US-BAYER-2019-008727

PATIENT
  Age: 60 Year
  Sex: Female

DRUGS (2)
  1. NEXAVAR [Suspect]
     Active Substance: SORAFENIB
     Indication: NEOPLASM MALIGNANT
     Dosage: 400 MG, BID, PILLS IN THE MORNING AND 2 PILLS AT NIGHT
     Route: 048
     Dates: end: 20190308
  2. NEXAVAR [Suspect]
     Active Substance: SORAFENIB
     Indication: HEPATOCELLULAR CARCINOMA
     Dosage: 400 MG AT BEDTIME
     Route: 048
     Dates: start: 20181130

REACTIONS (8)
  - Pain [Not Recovered/Not Resolved]
  - Hepatocellular carcinoma [None]
  - Eye irritation [Not Recovered/Not Resolved]
  - Blister [Not Recovered/Not Resolved]
  - Off label use [None]
  - Blister [Recovered/Resolved]
  - Nipple pain [Not Recovered/Not Resolved]
  - Blister [Not Recovered/Not Resolved]

NARRATIVE: CASE EVENT DATE: 2018
